FAERS Safety Report 6183994-6 (Version None)
Quarter: 2009Q2

REPORT INFORMATION
  Report Type: 
  Country: None (occurrence: None)
  Receive Date: 20090508
  Receipt Date: 20090407
  Transmission Date: 20091009
  Serious: No
  Sender: FDA-Public Use
  Company Number: US-BAYER-200917784NA

PATIENT
  Age: 72 Year
  Sex: Female

DRUGS (1)
  1. CIPRO [Suspect]
     Indication: DRUG USE FOR UNKNOWN INDICATION
     Dosage: UNIT DOSE: 500 MG

REACTIONS (1)
  - PAIN [None]
